FAERS Safety Report 4914138-3 (Version None)
Quarter: 2006Q1

REPORT INFORMATION
  Report Type: 
  Country: None (occurrence: None)
  Receive Date: 20060213
  Receipt Date: 20060208
  Transmission Date: 20060701
  Serious: Yes (Disabling, Other)
  Sender: FDA-Public Use
  Company Number: TCI2005A03225

PATIENT
  Age: 65 Year
  Sex: Female

DRUGS (8)
  1. LANSOPRAZOLE [Suspect]
     Indication: REFLUX OESOPHAGITIS
     Dosage: 15 MG (15 MG, 1 IN 1 D) PER ORAL
     Route: 048
     Dates: start: 19971213, end: 20030529
  2. LANSOPRAZOLE [Suspect]
     Indication: REFLUX OESOPHAGITIS
     Dosage: 15 MG (15 MG, 1 IN 1 D) PER ORAL
     Route: 048
     Dates: start: 20030701, end: 20050707
  3. DIART (AZOSEMIDE) [Concomitant]
  4. LEVOTHYROXINE SODIUM [Concomitant]
  5. BUFFERIN [Concomitant]
  6. WARFARIN SODIUM [Concomitant]
  7. MAGNESIUM OXIDE [Concomitant]
  8. PREDNISOLONE [Concomitant]

REACTIONS (2)
  - EOSINOPHILIA [None]
  - NEPHRITIS INTERSTITIAL [None]
